FAERS Safety Report 25870235 (Version 1)
Quarter: 2025Q4

REPORT INFORMATION
  Report Type: Spontaneous
  Country: EU (occurrence: EU)
  Receive Date: 20251001
  Receipt Date: 20251001
  Transmission Date: 20260118
  Serious: Yes (Life-Threatening, Hospitalization)
  Sender: ACCORD
  Company Number: EU-MLMSERVICE-20250912-PI644423-00218-1

PATIENT
  Age: 66 Year
  Sex: Female
  Weight: 63 kg

DRUGS (23)
  1. METHOTREXATE [Suspect]
     Active Substance: METHOTREXATE
     Indication: Diffuse large B-cell lymphoma
     Route: 037
  2. BISOPROLOL [Concomitant]
     Active Substance: BISOPROLOL
  3. LEVETIRACETAM [Concomitant]
     Active Substance: LEVETIRACETAM
  4. METHYLPREDNISOLONE [Concomitant]
     Active Substance: METHYLPREDNISOLONE
     Indication: Confusional state
  5. OMEPRAZOLE [Concomitant]
     Active Substance: OMEPRAZOLE
  6. PROCARBAZINE [Concomitant]
     Active Substance: PROCARBAZINE
     Indication: Diffuse large B-cell lymphoma
     Dosage: ON DAY 0, (PLANNED FOR 7 DAYS)
     Route: 048
  7. RITUXIMAB [Concomitant]
     Active Substance: RITUXIMAB
     Indication: Diffuse large B-cell lymphoma
     Dosage: (500 MG/M2)
  8. SODIUM BICARBONATE [Concomitant]
     Active Substance: SODIUM BICARBONATE
     Indication: Urine alkalinisation therapy
  9. VINCRISTINE [Concomitant]
     Active Substance: VINCRISTINE
     Indication: Diffuse large B-cell lymphoma
     Dosage: ON DAY 0, (1.4 MG/M2)
  10. VINCRISTINE [Concomitant]
     Active Substance: VINCRISTINE
     Indication: Central nervous system lymphoma
     Dosage: ON DAY 0, (1.4 MG/M2)
  11. RITUXIMAB [Concomitant]
     Active Substance: RITUXIMAB
     Indication: Central nervous system lymphoma
     Dosage: (500 MG/M2)
  12. PROCARBAZINE [Concomitant]
     Active Substance: PROCARBAZINE
     Indication: Central nervous system lymphoma
     Dosage: ON DAY 0, (PLANNED FOR 7 DAYS)
     Route: 048
  13. METHOTREXATE [Suspect]
     Active Substance: METHOTREXATE
     Indication: Diffuse large B-cell lymphoma
     Dosage: (3500 MG/M2) OVER 2 HOURS
  14. METHOTREXATE [Suspect]
     Active Substance: METHOTREXATE
     Indication: Central nervous system lymphoma
     Dosage: (3500 MG/M2) OVER 2 HOURS
  15. METHYLPREDNISOLONE [Concomitant]
     Active Substance: METHYLPREDNISOLONE
     Indication: Confusional state
     Dosage: WEANED OVER THE PREVIOUS 3 MONTHS
  16. METHYLPREDNISOLONE [Concomitant]
     Active Substance: METHYLPREDNISOLONE
     Indication: Confusional state
  17. METHYLPREDNISOLONE [Concomitant]
     Active Substance: METHYLPREDNISOLONE
     Indication: Diffuse large B-cell lymphoma
     Dosage: WEANED OVER THE PREVIOUS 3 MONTHS
  18. METHYLPREDNISOLONE [Concomitant]
     Active Substance: METHYLPREDNISOLONE
     Indication: Diffuse large B-cell lymphoma
  19. METHYLPREDNISOLONE [Concomitant]
     Active Substance: METHYLPREDNISOLONE
     Indication: Central nervous system lymphoma
     Dosage: WEANED OVER THE PREVIOUS 3 MONTHS
  20. METHYLPREDNISOLONE [Concomitant]
     Active Substance: METHYLPREDNISOLONE
     Indication: Central nervous system lymphoma
  21. METHOTREXATE [Suspect]
     Active Substance: METHOTREXATE
     Indication: Central nervous system lymphoma
     Route: 037
  22. METHYLPREDNISOLONE [Concomitant]
     Active Substance: METHYLPREDNISOLONE
     Indication: Confusional state
     Dosage: WEANED OVER THE PREVIOUS 3 MONTHS
  23. METHYLPREDNISOLONE [Concomitant]
     Active Substance: METHYLPREDNISOLONE
     Indication: Diffuse large B-cell lymphoma

REACTIONS (10)
  - Metabolic alkalosis [Unknown]
  - Hypokalaemia [Unknown]
  - Mucosal inflammation [Unknown]
  - Hepatotoxicity [Recovering/Resolving]
  - Anaemia [Unknown]
  - Thrombocytopenia [Unknown]
  - Acute kidney injury [Recovered/Resolved]
  - Febrile neutropenia [Unknown]
  - Toxicity to various agents [Recovering/Resolving]
  - Pleural effusion [Unknown]
